FAERS Safety Report 12875655 (Version 2)
Quarter: 2016Q4

REPORT INFORMATION
  Report Type: Spontaneous
  Country: US (occurrence: US)
  Receive Date: 20161024
  Receipt Date: 20161111
  Transmission Date: 20170207
  Serious: Yes (Other)
  Sender: FDA-Public Use
  Company Number: US-JNJFOC-20110603944

PATIENT
  Age: 49 Year
  Sex: Female

DRUGS (4)
  1. TOBRADEX [Concomitant]
     Active Substance: DEXAMETHASONE\TOBRAMYCIN
     Indication: STEROID THERAPY
     Route: 065
  2. LEVAQUIN [Suspect]
     Active Substance: LEVOFLOXACIN
     Indication: SINUSITIS
     Route: 048
  3. LEVAQUIN [Suspect]
     Active Substance: LEVOFLOXACIN
     Indication: SINUSITIS
     Route: 048
     Dates: start: 200802
  4. NASONEX [Suspect]
     Active Substance: MOMETASONE FUROATE
     Indication: STEROID THERAPY
     Route: 065

REACTIONS (10)
  - Neuropathy peripheral [Unknown]
  - Tendon disorder [Unknown]
  - Tendon disorder [Unknown]
  - Peripheral sensorimotor neuropathy [Unknown]
  - Plantar fasciitis [Unknown]
  - Tenosynovitis [Unknown]
  - Tendon disorder [Unknown]
  - Tendonitis [Unknown]
  - Tendon disorder [Unknown]
  - Tendon disorder [Unknown]

NARRATIVE: CASE EVENT DATE: 200705
